FAERS Safety Report 17295684 (Version 1)
Quarter: 2020Q1

REPORT INFORMATION
  Report Type: Spontaneous
  Country: US (occurrence: US)
  Receive Date: 20200121
  Receipt Date: 20200121
  Transmission Date: 20200409
  Serious: No
  Sender: FDA-Public Use
  Company Number: US-VERTEX PHARMACEUTICALS-2020-000582

PATIENT
  Sex: Female
  Weight: 48 kg

DRUGS (2)
  1. XOLAIR [Concomitant]
     Active Substance: OMALIZUMAB
  2. SYMDEKO [Suspect]
     Active Substance: IVACAFTOR\TEZACAFTOR
     Indication: CYSTIC FIBROSIS
     Dosage: (100 MG TEZACAFTOR/150 MG IVACAFTOR)AM; (150 MG IVACAFTOR)PM, BID
     Route: 048

REACTIONS (1)
  - Depressed mood [Unknown]
